FAERS Safety Report 6316082-6 (Version None)
Quarter: 2009Q3

REPORT INFORMATION
  Report Type: 
  Country: None (occurrence: None)
  Receive Date: 20090820
  Receipt Date: 20090812
  Transmission Date: 20100115
  Serious: Yes (Disabling)
  Sender: FDA-Public Use
  Company Number: PHHO2009IT09958

PATIENT
  Sex: Female
  Weight: 47 kg

DRUGS (5)
  1. ZOLEDRONATE T29581+SOLINJ+BM [Suspect]
     Dosage: 4 MG, QMO
     Route: 042
     Dates: start: 20090101, end: 20090805
  2. CALCIUM [Concomitant]
  3. VITAMIN D [Concomitant]
  4. PACLITAXEL [Concomitant]
     Indication: METASTASES TO BONE
     Dosage: UNK
     Dates: start: 20090610
  5. DEXAMETHASONE [Concomitant]
     Dosage: UNK
     Dates: start: 20090610

REACTIONS (4)
  - BONE DISORDER [None]
  - MUCOSAL INFLAMMATION [None]
  - OSTEONECROSIS [None]
  - PAIN [None]
